FAERS Safety Report 26017452 (Version 1)
Quarter: 2025Q4

REPORT INFORMATION
  Report Type: Spontaneous
  Country: NP (occurrence: NP)
  Receive Date: 20251110
  Receipt Date: 20251110
  Transmission Date: 20260118
  Serious: Yes (Death, Hospitalization, Other)
  Sender: STRIDES
  Company Number: NP-STRIDES ARCOLAB LIMITED-2025SP013696

PATIENT
  Age: 51 Year
  Sex: Male

DRUGS (1)
  1. METHOTREXATE [Suspect]
     Active Substance: METHOTREXATE
     Indication: Product used for unknown indication
     Dosage: 15 MILLIGRAM, QD
     Route: 065

REACTIONS (10)
  - Toxicity to various agents [Fatal]
  - Accidental poisoning [Fatal]
  - Haemorrhage intracranial [Fatal]
  - Thrombocytopenia [Fatal]
  - Pancytopenia [Fatal]
  - Target skin lesion [Recovered/Resolved]
  - Papule [Recovered/Resolved]
  - Oral mucosa erosion [Recovered/Resolved]
  - Skin plaque [Recovered/Resolved]
  - Mouth ulceration [Recovered/Resolved]
